FAERS Safety Report 8135892-6 (Version None)
Quarter: 2012Q1

REPORT INFORMATION
  Report Type: 
  Country: None (occurrence: None)
  Receive Date: 20120214
  Receipt Date: 20120206
  Transmission Date: 20120608
  Serious: Yes (Death)
  Sender: FDA-Public Use
  Company Number: DE-GLAXOSMITHKLINE-D0073793A

PATIENT
  Sex: Female
  Weight: 90 kg

DRUGS (12)
  1. FERROUS SULFATE TAB [Concomitant]
     Route: 065
  2. VITAMINS B1 B6 [Concomitant]
     Route: 048
  3. TORSEMIDE [Concomitant]
     Dosage: 5MG PER DAY
     Route: 048
  4. PANTOPRAZOLE [Concomitant]
     Route: 065
  5. HEMOSTAN [Concomitant]
     Route: 065
  6. HEPARIN [Suspect]
     Indication: THROMBOSIS PROPHYLAXIS
     Dosage: 500IU TWICE PER DAY
     Route: 058
     Dates: start: 20111117, end: 20111121
  7. DURAGESIC-100 [Concomitant]
     Dosage: 50UGH UNKNOWN
     Route: 062
  8. DIPYRONE TAB [Concomitant]
     Route: 065
  9. LASIX [Concomitant]
     Route: 065
  10. LEVOTHYROXINE SODIUM [Concomitant]
     Dosage: 100UG PER DAY
     Route: 048
  11. SULPIRID [Concomitant]
     Route: 048
  12. ARIXTRA [Suspect]
     Indication: THROMBOSIS PROPHYLAXIS
     Route: 058
     Dates: end: 20111117

REACTIONS (2)
  - SHOCK HAEMORRHAGIC [None]
  - HAEMORRHAGE [None]
